FAERS Safety Report 20221596 (Version 2)
Quarter: 2021Q4

REPORT INFORMATION
  Report Type: Spontaneous
  Country: CA (occurrence: CA)
  Receive Date: 20211223
  Receipt Date: 20211227
  Transmission Date: 20220303
  Serious: Yes (Hospitalization)
  Sender: FDA-Public Use
  Company Number: CA-BAUSCH-BL-2021-041986

PATIENT
  Age: 6 Month
  Sex: Female
  Weight: 6.5 kg

DRUGS (2)
  1. BUPROPION [Suspect]
     Active Substance: BUPROPION
     Indication: Product used for unknown indication
     Dosage: DOSAGE: 150 MG/D
     Route: 063
  2. ESCITALOPRAM [Suspect]
     Active Substance: ESCITALOPRAM OXALATE
     Indication: Product used for unknown indication
     Dosage: DOSAGE: 10 MG/D
     Route: 063

REACTIONS (7)
  - Sleep disorder [Recovered/Resolved]
  - Vomiting [Recovered/Resolved]
  - Somnolence [Recovered/Resolved]
  - Seizure [Recovered/Resolved]
  - Cyanosis [Recovered/Resolved]
  - Drug interaction [Unknown]
  - Exposure via breast milk [Unknown]
